FAERS Safety Report 9338669 (Version 1)
Quarter: 2013Q2

REPORT INFORMATION
  Report Type: Spontaneous
  Country: US (occurrence: US)
  Receive Date: 20130610
  Receipt Date: 20130610
  Transmission Date: 20140414
  Serious: No
  Sender: FDA-Public Use
  Company Number: US-BRISTOL-MYERS SQUIBB COMPANY-18711390

PATIENT
  Age: 47 Year
  Sex: Male

DRUGS (5)
  1. SUSTIVA [Suspect]
  2. BACTRIM [Suspect]
  3. ISENTRESS [Concomitant]
  4. TRUVADA [Concomitant]
  5. ENALAPRIL [Concomitant]

REACTIONS (1)
  - Drug hypersensitivity [Unknown]
